FAERS Safety Report 4965212-7 (Version None)
Quarter: 2006Q1

REPORT INFORMATION
  Report Type: 
  Country: None (occurrence: None)
  Receive Date: 20060201
  Receipt Date: 20051212
  Transmission Date: 20060701
  Serious: No
  Sender: FDA-Public Use
  Company Number: FACT0500725

PATIENT
  Age: 20 Year
  Sex: Male
  Weight: 92.5 kg

DRUGS (3)
  1. FACTIVE [Suspect]
     Indication: RESPIRATORY TRACT INFECTION BACTERIAL
     Dosage: 320 MG, QD, ORAL
     Route: 048
     Dates: start: 20051207, end: 20051207
  2. PREDNISONE TAB [Suspect]
     Indication: RHINITIS ALLERGIC
     Dates: start: 20051207, end: 20051201
  3. KETEK [Suspect]
     Dates: start: 20050101, end: 20050101

REACTIONS (4)
  - ANGIONEUROTIC OEDEMA [None]
  - DYSPHAGIA [None]
  - URTICARIA [None]
  - WHEEZING [None]
